FAERS Safety Report 15739016 (Version 1)
Quarter: 2018Q4

REPORT INFORMATION
  Report Type: Report from Study
  Country: CA (occurrence: CA)
  Receive Date: 20181219
  Receipt Date: 20181219
  Transmission Date: 20190205
  Serious: Yes (Other)
  Sender: FDA-Public Use
  Company Number: CA-ROCHE-2126048

PATIENT
  Sex: Female

DRUGS (2)
  1. ALECENSARO [Suspect]
     Active Substance: ALECTINIB
     Indication: NON-SMALL CELL LUNG CANCER STAGE IV
     Dosage: THERAPY START DATE: 08/MAY/2018
     Route: 048
     Dates: start: 20180508, end: 20181119
  2. ALECENSARO [Suspect]
     Active Substance: ALECTINIB
     Dosage: DOSE REDUCED TO 3 PILLS TWICE A DAY; START DATE: MAY/2018
     Route: 048

REACTIONS (13)
  - Muscular weakness [Unknown]
  - Fatigue [Not Recovered/Not Resolved]
  - Joint swelling [Not Recovered/Not Resolved]
  - Cough [Not Recovered/Not Resolved]
  - Dyspnoea [Not Recovered/Not Resolved]
  - Dyspnoea [Recovering/Resolving]
  - Somnolence [Not Recovered/Not Resolved]
  - Fatigue [Recovered/Resolved]
  - Oedema [Not Recovered/Not Resolved]
  - Weight increased [Unknown]
  - Constipation [Not Recovered/Not Resolved]
  - Computerised tomogram thorax abnormal [Not Recovered/Not Resolved]
  - Dyspepsia [Unknown]
